FAERS Safety Report 5801319-X (Version None)
Quarter: 2008Q3

REPORT INFORMATION
  Report Type: 
  Country: None (occurrence: None)
  Receive Date: 20080707
  Receipt Date: 20080627
  Transmission Date: 20090109
  Serious: Yes (Other)
  Sender: FDA-Public Use
  Company Number: GB-JNJFOC-20080604849

PATIENT
  Age: 6 Decade
  Sex: Female

DRUGS (1)
  1. RISPERDAL [Suspect]
     Indication: DRUG USE FOR UNKNOWN INDICATION
     Dosage: 0.5MG IN THE MORNING AND 1.5MG IN THE EVENING
     Route: 048

REACTIONS (1)
  - HYPOKALAEMIA [None]
